FAERS Safety Report 16445483 (Version 18)
Quarter: 2020Q2

REPORT INFORMATION
  Report Type: Report from Study
  Country: KR (occurrence: KR)
  Receive Date: 20190618
  Receipt Date: 20200527
  Transmission Date: 20200713
  Serious: Yes (Hospitalization)
  Sender: FDA-Public Use
  Company Number: KR-EISAI MEDICAL RESEARCH-EC-2019-057283

PATIENT
  Age: 66 Year
  Sex: Female

DRUGS (21)
  1. LENVATINIB [Suspect]
     Active Substance: LENVATINIB
     Route: 048
     Dates: start: 20190610, end: 20190610
  2. HARNAL [Concomitant]
     Active Substance: TAMSULOSIN HYDROCHLORIDE
     Dates: start: 201806
  3. LANSTON [Concomitant]
     Active Substance: LANSOPRAZOLE
     Dates: start: 20190423
  4. PEMBROLIZUMAB. [Suspect]
     Active Substance: PEMBROLIZUMAB
     Indication: COLORECTAL CANCER
     Route: 041
     Dates: start: 20190516, end: 20190516
  5. PEMBROLIZUMAB. [Suspect]
     Active Substance: PEMBROLIZUMAB
     Route: 041
     Dates: start: 20190704
  6. PENIRAMIN [Concomitant]
     Dates: start: 20190529, end: 20190529
  7. PROFA [Concomitant]
     Dates: start: 20190529, end: 20190531
  8. CJ PLASMA SOLUTION A [Concomitant]
     Dates: start: 20190530, end: 20190530
  9. MUCOSTEN [Concomitant]
     Dates: start: 20190530, end: 20190530
  10. TANTUM [Concomitant]
     Active Substance: BENZYDAMINE HYDROCHLORIDE
     Dates: start: 20190506
  11. AMARYL MEX [Concomitant]
     Dates: start: 20160529, end: 20190601
  12. LENVATINIB [Suspect]
     Active Substance: LENVATINIB
     Route: 048
     Dates: start: 20191017
  13. PERDIPINE [Concomitant]
     Active Substance: NICARDIPINE HYDROCHLORIDE
     Dates: start: 20190529, end: 20190529
  14. URSA TABLETS [Concomitant]
     Dates: start: 20190530, end: 20190530
  15. SODIUM BICARBONATE. [Concomitant]
     Active Substance: SODIUM BICARBONATE
     Dates: start: 20190506
  16. SODIUM CHLORIDE. [Concomitant]
     Active Substance: SODIUM CHLORIDE
     Dates: start: 20190529, end: 20190529
  17. LENVATINIB [Suspect]
     Active Substance: LENVATINIB
     Indication: COLORECTAL CANCER
     Route: 048
     Dates: start: 20190516, end: 20190529
  18. PEMBROLIZUMAB. [Suspect]
     Active Substance: PEMBROLIZUMAB
     Route: 041
     Dates: start: 20190610, end: 20190610
  19. NORVASC [Concomitant]
     Active Substance: AMLODIPINE BESYLATE
     Dates: start: 20190423, end: 20190531
  20. MEPERIDINE HYDROCHOLORIDE [Concomitant]
     Dates: start: 20190529, end: 20190529
  21. MORPHINE SULFATE. [Concomitant]
     Active Substance: MORPHINE SULFATE
     Dates: start: 20190529, end: 20190529

REACTIONS (2)
  - Urinary tract infection [Recovered/Resolved]
  - Confusional state [Recovered/Resolved]

NARRATIVE: CASE EVENT DATE: 20190530
